FAERS Safety Report 10788683 (Version 1)
Quarter: 2015Q1

REPORT INFORMATION
  Report Type: Spontaneous
  Country: US (occurrence: None)
  Receive Date: 20150211
  Receipt Date: 20150211
  Transmission Date: 20150721
  Serious: Yes (Other)
  Sender: FDA-Public Use
  Company Number: None

PATIENT
  Age: 62 Year
  Sex: Male
  Weight: 81.2 kg

DRUGS (2)
  1. HYDROXYUREA 500MG CAPSULE BARR [Suspect]
     Active Substance: HYDROXYUREA
     Indication: THROMBOCYTOSIS
     Dosage: 500MG BID PO SUMMER 2014 0 1/2/15?
     Route: 048
     Dates: start: 2014, end: 20150102
  2. HYDROXYUREA 500MG CAPSULE PAR [Suspect]
     Active Substance: HYDROXYUREA
     Indication: THROMBOCYTOSIS
     Dosage: 500 MG BID PO 03/13-SUMMER/2014, RESUME 1/3/15?
     Route: 048
     Dates: start: 201303

REACTIONS (3)
  - Product substitution issue [None]
  - Product quality issue [None]
  - Platelet count increased [None]

NARRATIVE: CASE EVENT DATE: 20150209
